FAERS Safety Report 13967083 (Version 1)
Quarter: 2017Q3

REPORT INFORMATION
  Report Type: Spontaneous
  Country: US (occurrence: None)
  Receive Date: 20170914
  Receipt Date: 20170914
  Transmission Date: 20171128
  Serious: Yes (Hospitalization)
  Sender: FDA-Public Use
  Company Number: None

PATIENT
  Age: 64 Year
  Sex: Female
  Weight: 68.2 kg

DRUGS (13)
  1. INSULIN DETEMIR [Concomitant]
     Active Substance: INSULIN DETEMIR
  2. LACTULOSE. [Concomitant]
     Active Substance: LACTULOSE
  3. MULTIVITAM [Concomitant]
  4. NUTRA LIFE [Concomitant]
  5. OMEGA 3 [Concomitant]
     Active Substance: OMEGA-3 FATTY ACIDS
  6. EPCLUSA [Suspect]
     Active Substance: SOFOSBUVIR\VELPATASVIR
     Indication: HEPATITIS C VIRUS TEST
     Route: 048
     Dates: start: 20170123, end: 20170512
  7. INSULIN ASPART [Concomitant]
     Active Substance: INSULIN ASPART
  8. RIFAXIMIN [Concomitant]
     Active Substance: RIFAXIMIN
  9. FOLIC ACID. [Concomitant]
     Active Substance: FOLIC ACID
  10. TUMS [Concomitant]
     Active Substance: CALCIUM CARBONATE
  11. RIBAVIRIN 200MG [Suspect]
     Active Substance: RIBAVIRIN
     Route: 048
  12. LEVOTHYROX [Concomitant]
     Active Substance: LEVOTHYROXINE
  13. THIAMINE. [Concomitant]
     Active Substance: THIAMINE

REACTIONS (5)
  - Hypokalaemia [None]
  - Pancytopenia [None]
  - Hepatic encephalopathy [None]
  - Hyperglycaemia [None]
  - Diabetic coma [None]

NARRATIVE: CASE EVENT DATE: 20170208
